FAERS Safety Report 24082862 (Version 1)
Quarter: 2024Q3

REPORT INFORMATION
  Report Type: Spontaneous
  Country: FR (occurrence: FR)
  Receive Date: 20240712
  Receipt Date: 20240712
  Transmission Date: 20241017
  Serious: Yes (Hospitalization, Other)
  Sender: AUROBINDO
  Company Number: FR-ACTAVIS-2010A-04444

PATIENT
  Age: 30 Year
  Sex: Female

DRUGS (4)
  1. ACYCLOVIR [Suspect]
     Active Substance: ACYCLOVIR
     Indication: Meningitis
     Dosage: 1350 MG/8 HOURS
     Route: 042
  2. ACYCLOVIR [Suspect]
     Active Substance: ACYCLOVIR
     Dosage: 15 MILLIGRAM/KILOGRAM, 3 TIMES A DAY
     Route: 041
  3. ACYCLOVIR [Suspect]
     Active Substance: ACYCLOVIR
     Dosage: 15 MG/KG, Q8H
     Route: 042
  4. SIBUTRAMINE [Concomitant]
     Active Substance: SIBUTRAMINE
     Indication: Product used for unknown indication
     Dosage: UNK
     Route: 065

REACTIONS (3)
  - Acute kidney injury [Recovered/Resolved]
  - Crystalluria [Recovered/Resolved]
  - Blood creatinine increased [Unknown]
